FAERS Safety Report 11158080 (Version 1)
Quarter: 2015Q2

REPORT INFORMATION
  Report Type: Spontaneous
  Country: FR (occurrence: None)
  Receive Date: 20150601
  Receipt Date: 20150601
  Transmission Date: 20150821
  Serious: Yes (Life-Threatening, Hospitalization, Disabling, Other)
  Sender: FDA-Public Use
  Company Number: ADR-2015-01050

PATIENT
  Age: 34 Year

DRUGS (5)
  1. CLORAZEPATE [Suspect]
     Active Substance: CLORAZEPATE DIPOTASSIUM
  2. CYAMEMAZINE [Suspect]
     Active Substance: CYAMEMAZINE
     Indication: SCHIZOPHRENIA
  3. BACLOFEN. [Suspect]
     Active Substance: BACLOFEN
  4. TETRABENAZIN [Suspect]
     Active Substance: TETRABENAZINE
  5. LEVOTHYROXIN [Suspect]
     Active Substance: LEVOTHYROXINE

REACTIONS (3)
  - Haemodynamic instability [None]
  - Colitis ischaemic [None]
  - Gastrointestinal necrosis [None]
